FAERS Safety Report 18020391 (Version 2)
Quarter: 2020Q3

REPORT INFORMATION
  Report Type: Spontaneous
  Country: ZA (occurrence: ZA)
  Receive Date: 20200714
  Receipt Date: 20200720
  Transmission Date: 20201103
  Serious: Yes (Other)
  Sender: FDA-Public Use
  Company Number: ZA-MYLANLABS-2020M1063512

PATIENT
  Age: 8 Year
  Sex: Male

DRUGS (1)
  1. CONTRAMYL XR [Suspect]
     Active Substance: METHYLPHENIDATE
     Indication: AGE-RELATED MACULAR DEGENERATION
     Dosage: 18 MILLIGRAM, AM (2 DAYS)

REACTIONS (2)
  - Reynold^s syndrome [Recovered/Resolved]
  - Product substitution issue [Unknown]
